FAERS Safety Report 4599363-6 (Version None)
Quarter: 2005Q1

REPORT INFORMATION
  Report Type: 
  Country: None (occurrence: None)
  Receive Date: 20050302
  Receipt Date: 20050302
  Transmission Date: 20050727
  Serious: No
  Sender: FDA-Public Use
  Company Number: None

PATIENT
  Sex: Female
  Weight: 72.5755 kg

DRUGS (1)
  1. NEURONTIN [Suspect]
     Indication: CAUDA EQUINA SYNDROME
     Dosage: 600MG  - 2 PO 4 X DAY
     Route: 048

REACTIONS (2)
  - PHARMACEUTICAL PRODUCT COMPLAINT [None]
  - PRURITUS GENERALISED [None]
